FAERS Safety Report 4981164-8 (Version None)
Quarter: 2006Q2

REPORT INFORMATION
  Report Type: 
  Country: None (occurrence: None)
  Receive Date: 20060418
  Receipt Date: 20060407
  Transmission Date: 20061013
  Serious: Yes (Other)
  Sender: FDA-Public Use
  Company Number: 2006048424

PATIENT
  Age: 51 Year
  Sex: Male
  Weight: 72.5755 kg

DRUGS (2)
  1. UNISOM [Suspect]
     Indication: SUICIDE ATTEMPT
     Dosage: 32 SLEEPGELS IN ONE NIGHT, ORAL
     Route: 048
     Dates: start: 20060406, end: 20060406
  2. ETHANOL (ETHANOL) [Suspect]
     Indication: SUICIDE ATTEMPT
     Dosage: PINT OF TEQUILA, ORAL
     Route: 048
     Dates: start: 20060406

REACTIONS (8)
  - ALCOHOL USE [None]
  - FEELING ABNORMAL [None]
  - HALLUCINATION, VISUAL [None]
  - INSOMNIA [None]
  - INTENTIONAL OVERDOSE [None]
  - MOTION SICKNESS [None]
  - MYDRIASIS [None]
  - SUICIDE ATTEMPT [None]
